FAERS Safety Report 7819118-6 (Version None)
Quarter: 2011Q4

REPORT INFORMATION
  Report Type: 
  Country: None (occurrence: None)
  Receive Date: 20111018
  Receipt Date: 20111004
  Transmission Date: 20120403
  Serious: Yes (Death, Congenital Anomaly, Other)
  Sender: FDA-Public Use
  Company Number: GXKR2008DK10379

PATIENT
  Sex: Male

DRUGS (4)
  1. KEPPRA [Suspect]
     Indication: EPILEPSY
     Dosage: 750 MILLIGRAM(S)
  2. LAMOTRIGINE [Suspect]
     Indication: EPILEPSY
     Dosage: UNK UKN, UNK
  3. LAMOTRIGINE [Suspect]
     Dosage: MATERNAL DOSE: 300 MG/DAY
     Route: 064
  4. KEPPRA [Suspect]
     Dosage: MATERNAL DOSE: 1500 MG/DAY
     Route: 064

REACTIONS (12)
  - LIMB DEFORMITY [None]
  - PREMATURE LABOUR [None]
  - MATERNAL EXPOSURE DURING PREGNANCY [None]
  - CONGENITAL GENITAL MALFORMATION [None]
  - RENAL APLASIA [None]
  - CAUDAL REGRESSION SYNDROME [None]
  - LIMB REDUCTION DEFECT [None]
  - POTTER'S SYNDROME [None]
  - OLIGOHYDRAMNIOS [None]
  - ANAL ATRESIA [None]
  - CONGENITAL INTESTINAL MALFORMATION [None]
  - ASPHYXIA [None]
